FAERS Safety Report 13455959 (Version 3)
Quarter: 2017Q3

REPORT INFORMATION
  Report Type: Spontaneous
  Country: JP (occurrence: JP)
  Receive Date: 20170419
  Receipt Date: 20170807
  Transmission Date: 20171127
  Serious: Yes (Death, Other)
  Sender: FDA-Public Use
  Company Number: JP-009507513-1704JPN001227J

PATIENT
  Age: 47 Year
  Sex: Male
  Weight: 47 kg

DRUGS (6)
  1. DIART [Concomitant]
     Active Substance: AZOSEMIDE
     Indication: DIURETIC THERAPY
     Dosage: 1 DF, QD
     Route: 048
     Dates: end: 20170409
  2. REBAMIPIDE [Concomitant]
     Active Substance: REBAMIPIDE
     Dosage: 1 DF, TID
     Route: 048
     Dates: end: 20170409
  3. KEYTRUDA [Suspect]
     Active Substance: PEMBROLIZUMAB
     Indication: LUNG ADENOCARCINOMA
     Dosage: 200 MG, Q3W
     Route: 041
     Dates: start: 20170323
  4. NAIXAN [Concomitant]
     Active Substance: NAPROXEN SODIUM
     Indication: PAIN
     Dosage: 1 DF, TID
     Route: 048
     Dates: start: 20170302, end: 20170409
  5. TAKECAB [Concomitant]
     Active Substance: VONOPRAZAN FUMURATE
     Indication: GASTROOESOPHAGEAL REFLUX DISEASE
     Dosage: 1 DF, QD
     Route: 048
     Dates: start: 20170302, end: 20170409
  6. BFLUID [Concomitant]
     Active Substance: AMINO ACIDS\DEXTROSE\ELECTROLYTES NOS\VITAMINS
     Indication: PROPHYLAXIS
     Dosage: 1 DF, QD
     Route: 051
     Dates: start: 20170405, end: 20170409

REACTIONS (1)
  - Malignant neoplasm progression [Fatal]

NARRATIVE: CASE EVENT DATE: 20170410
